FAERS Safety Report 15770221 (Version 1)
Quarter: 2018Q4

REPORT INFORMATION
  Report Type: Spontaneous
  Country: US (occurrence: US)
  Receive Date: 20181228
  Receipt Date: 20181228
  Transmission Date: 20190205
  Serious: No
  Sender: FDA-Public Use
  Company Number: US-PFIZER INC-2018490187

PATIENT
  Age: 78 Year
  Sex: Female
  Weight: 74.84 kg

DRUGS (3)
  1. PREMARIN [Suspect]
     Active Substance: ESTROGENS, CONJUGATED
     Dosage: UNK, 1X/DAY
     Dates: start: 201811
  2. INSULIN [Concomitant]
     Active Substance: INSULIN NOS
     Indication: DIABETES MELLITUS
     Dosage: BASAL RATE PUMP
     Dates: start: 2004
  3. PREMARIN [Suspect]
     Active Substance: ESTROGENS, CONJUGATED
     Indication: VAGINAL INFECTION
     Dosage: 0.625 MG, UNK
     Route: 067

REACTIONS (3)
  - Product use in unapproved indication [Unknown]
  - Feeling abnormal [Unknown]
  - Self esteem decreased [Unknown]
